FAERS Safety Report 5611145-2 (Version None)
Quarter: 2008Q1

REPORT INFORMATION
  Report Type: 
  Country: None (occurrence: None)
  Receive Date: 20080201
  Receipt Date: 20080118
  Transmission Date: 20080703
  Serious: Yes (Other)
  Sender: FDA-Public Use
  Company Number: ES-GILEAD-2007-0014701

PATIENT
  Age: 50 Year
  Sex: Male

DRUGS (2)
  1. TRUVADA [Suspect]
     Dates: start: 20060117, end: 20060417
  2. EFAVIRENZ [Concomitant]

REACTIONS (1)
  - COAGULOPATHY [None]
